FAERS Safety Report 8115824 (Version 2)
Quarter: 2012Q4

REPORT INFORMATION
  Report Type: 
  Country: US (occurrence: US)
  Receive Date: 20110831
  Receipt Date: 20120830
  Transmission Date: 20130627
  Serious: Yes (Hospitalization, Other)
  Sender: FDA-Public Use
  Company Number: US-PFIZER INC-2011197008

PATIENT
  Age: 70 Year
  Sex: Male
  Weight: 126 kg

DRUGS (6)
  1. SUNITINIB MALATE [Suspect]
     Indication: ADRENAL CARCINOMA
     Dosage: 37.5 mg, 1x/day on days 1-28
     Route: 048
     Dates: start: 20110627, end: 20110724
  2. SUNITINIB MALATE [Suspect]
     Dosage: 25 mg, UNK
     Route: 048
     Dates: start: 20110808
  3. METFORMIN HCL [Suspect]
  4. BEVACIZUMAB [Suspect]
     Indication: ADRENAL CARCINOMA
     Dosage: 5 mg/kg, over 90-30 min on days 1, 15 and 29
     Route: 042
     Dates: start: 20110627, end: 20110711
  5. BEVACIZUMAB [Suspect]
     Dosage: UNK
     Dates: start: 20110808
  6. DYAZIDE [Suspect]

REACTIONS (4)
  - Renal failure acute [Recovered/Resolved]
  - Dehydration [Recovered/Resolved]
  - Hyperuricaemia [Recovered/Resolved]
  - Platelet count decreased [Recovered/Resolved]
